FAERS Safety Report 7275485-6 (Version None)
Quarter: 2011Q1

REPORT INFORMATION
  Report Type: 
  Country: None (occurrence: None)
  Receive Date: 20110202
  Receipt Date: 20110202
  Transmission Date: 20110831
  Serious: Yes (Death)
  Sender: FDA-Public Use
  Company Number: None

PATIENT
  Sex: Female
  Weight: 76.4 kg

DRUGS (2)
  1. VALPROIC ACID [Suspect]
     Indication: METASTATIC NEOPLASM
     Dosage: 500MG TID PO CYCLE 1
     Route: 048
     Dates: start: 20101215, end: 20110123
  2. HYDRALAZINE HCL [Suspect]
     Indication: METASTATIC NEOPLASM
     Dosage: 50 QID PO CYCLE 1
     Route: 048
     Dates: start: 20101229, end: 20110123

REACTIONS (7)
  - DEPRESSED LEVEL OF CONSCIOUSNESS [None]
  - CONVULSION [None]
  - GENERAL PHYSICAL HEALTH DETERIORATION [None]
  - AGGRESSION [None]
  - DISEASE PROGRESSION [None]
  - CENTRAL NERVOUS SYSTEM LESION [None]
  - COGNITIVE DISORDER [None]
